FAERS Safety Report 4279643-4 (Version None)
Quarter: 2004Q1

REPORT INFORMATION
  Report Type: 
  Country: None (occurrence: None)
  Receive Date: 20040126
  Receipt Date: 20040126
  Transmission Date: 20041129
  Serious: Yes (Hospitalization)
  Sender: FDA-Public Use
  Company Number: None

PATIENT
  Sex: Male
  Weight: 105 kg

DRUGS (1)
  1. CYCLOBENZAPRINE HCL [Suspect]
     Indication: ARTHRALGIA
     Dosage: 10 MG PO Q8H
     Route: 048
     Dates: start: 20031110, end: 20031124

REACTIONS (1)
  - TACHYCARDIA [None]
